FAERS Safety Report 9281779 (Version 2)
Quarter: 2013Q4

REPORT INFORMATION
  Report Type: Spontaneous
  Country: US (occurrence: US)
  Receive Date: 20130510
  Receipt Date: 20131011
  Transmission Date: 20140711
  Serious: Yes (Death, Hospitalization)
  Sender: FDA-Public Use
  Company Number: US-B.I. PHARMACEUTICALS,INC./RIDGEFIELD-2013-BI-12725BP

PATIENT
  Age: 75 Year
  Sex: Female
  Weight: 58.97 kg

DRUGS (27)
  1. PRADAXA [Suspect]
     Indication: ANTICOAGULANT THERAPY
     Dosage: 300 MG
     Route: 048
     Dates: start: 20110131, end: 20110215
  2. PRADAXA [Suspect]
     Indication: ATRIAL FIBRILLATION
  3. TYLENOL [Concomitant]
     Route: 048
  4. NORCO [Concomitant]
     Route: 048
  5. ATIVAN [Concomitant]
     Indication: ANXIETY
     Route: 048
  6. SPIRIVA [Concomitant]
     Dosage: 18 MCG
  7. SPIRONOLACTONE [Concomitant]
     Dosage: 25 MG
     Route: 048
  8. TORSEMIDE [Concomitant]
     Dosage: 10 MG
     Route: 048
  9. TRAZODONE [Concomitant]
     Route: 048
  10. VITAMIN B1 [Concomitant]
  11. VITAMIN D [Concomitant]
     Route: 048
  12. PAXIL [Concomitant]
     Dosage: 40 MG
     Route: 048
  13. POTASSIUM CHLORIDE [Concomitant]
     Dosage: 20 MEQ
     Route: 048
  14. PREMARIN [Concomitant]
     Dosage: 0.1786 MG
     Route: 067
  15. SIMVASTATIN [Concomitant]
     Dosage: 40 MG
     Route: 048
  16. PLAQUENIL [Concomitant]
     Dosage: 200 MG
     Route: 048
  17. LOSARTAN [Concomitant]
     Dosage: 12.5 MG
     Route: 048
  18. METOPROLOL [Concomitant]
     Dosage: 25 MG
     Route: 048
  19. MULTIVITAMIN [Concomitant]
  20. MACRODANTIN [Concomitant]
     Dosage: 25 MG
     Route: 048
  21. AMIODARONE [Concomitant]
     Dosage: 200 MG
     Route: 048
  22. ASPIRIN [Concomitant]
     Dosage: 325 MG
     Route: 048
     Dates: end: 20110215
  23. CALCIUM AND VITAMIN D [Concomitant]
     Route: 048
  24. DOCUSATE [Concomitant]
     Dosage: 200 MG
     Route: 048
  25. GEMFIBROZIL [Concomitant]
     Dosage: 1200 MG
     Route: 048
  26. NITROGLYCERIN [Concomitant]
  27. VENTOLIN [Concomitant]
     Route: 055

REACTIONS (2)
  - Cardiac failure congestive [Fatal]
  - Lower gastrointestinal haemorrhage [Unknown]
